FAERS Safety Report 10063702 (Version 1)
Quarter: 2014Q2

REPORT INFORMATION
  Report Type: Report from Study
  Country: US (occurrence: US)
  Receive Date: 20140407
  Receipt Date: 20140407
  Transmission Date: 20141212
  Serious: Yes (Death)
  Sender: FDA-Public Use
  Company Number: PHEH2014US006704

PATIENT
  Age: 69 Year
  Sex: Male

DRUGS (1)
  1. TOBI [Suspect]
     Indication: BRONCHIECTASIS
     Dosage: 300 MG, BID (28 DAYS ON 28 DAYS OFF)
     Route: 048
     Dates: start: 20130404

REACTIONS (1)
  - Death [Fatal]
